FAERS Safety Report 9554991 (Version 1)
Quarter: 2013Q3

REPORT INFORMATION
  Report Type: Spontaneous
  Country: US (occurrence: None)
  Receive Date: 20130925
  Receipt Date: 20130925
  Transmission Date: 20140515
  Serious: Yes (Death)
  Sender: FDA-Public Use
  Company Number: None

PATIENT
  Age: 21 Year
  Sex: Male
  Weight: 111.13 kg

DRUGS (1)
  1. SUBOXONE [Suspect]
     Indication: DRUG DEPENDENCE
     Dosage: 1 UNDER TONGUE FILM, TWICE DAILY, TAKEN UNDER THE TONGUE
     Dates: start: 20110107, end: 20110107

REACTIONS (2)
  - Cardiac disorder [None]
  - Unresponsive to stimuli [None]
